FAERS Safety Report 5155339-1 (Version None)
Quarter: 2006Q4

REPORT INFORMATION
  Report Type: 
  Country: None (occurrence: None)
  Receive Date: 20061114
  Receipt Date: 20061106
  Transmission Date: 20070319
  Serious: Yes (Hospitalization)
  Sender: FDA-Public Use
  Company Number: 06-0133PO FU 1

PATIENT
  Age: 38 Year
  Sex: Female

DRUGS (4)
  1. MEFENAMIC ACID [Suspect]
     Indication: NEOPLASM
     Dosage: 500 MG, PRN; PO
     Route: 048
     Dates: start: 20030101, end: 20060901
  2. MEFENAMIC ACID [Suspect]
     Indication: PAIN
     Dosage: 500 MG, PRN; PO
     Route: 048
     Dates: start: 20030101, end: 20060901
  3. DIPYRONE INJ [Concomitant]
  4. NOVALGINA (DIPYRONE) [Concomitant]

REACTIONS (5)
  - ABDOMINAL PAIN [None]
  - ANAEMIA [None]
  - FALLOPIAN TUBE CYST [None]
  - OOPHORITIS [None]
  - UTERINE CYST [None]
